FAERS Safety Report 16179734 (Version 1)
Quarter: 2019Q2

REPORT INFORMATION
  Report Type: Spontaneous
  Country: US (occurrence: US)
  Receive Date: 20190307
  Receipt Date: 20190307
  Transmission Date: 20190711
  Serious: No
  Sender: FDA-Public Use
  Company Number: None

PATIENT
  Age: 74 Year
  Sex: Female

DRUGS (1)
  1. IMATINIB  400MG TAB (X30) [Suspect]
     Active Substance: IMATINIB
     Route: 048
     Dates: start: 20150307

REACTIONS (2)
  - Anaemia [None]
  - Faeces discoloured [None]

NARRATIVE: CASE EVENT DATE: 20190207
